FAERS Safety Report 5976321-8 (Version None)
Quarter: 2008Q4

REPORT INFORMATION
  Report Type: 
  Country: None (occurrence: None)
  Receive Date: 20081202
  Receipt Date: 20081113
  Transmission Date: 20090506
  Serious: No
  Sender: FDA-Public Use
  Company Number: US-B.I. PHARMACEUTICALS,INC./RIDGEFIELD-2008-BP-17613BP

PATIENT
  Sex: Male

DRUGS (4)
  1. SPIRIVA [Suspect]
     Indication: CHRONIC OBSTRUCTIVE PULMONARY DISEASE
     Dates: start: 20070201
  2. ADVAIR DISKUS 100/50 [Concomitant]
     Indication: DYSPNOEA
  3. ALBUTEROL SULFATE [Concomitant]
     Indication: DYSPNOEA
  4. FORADIL [Concomitant]
     Indication: DYSPNOEA

REACTIONS (1)
  - CONSTIPATION [None]
